FAERS Safety Report 21708099 (Version 4)
Quarter: 2023Q1

REPORT INFORMATION
  Report Type: Spontaneous
  Country: US (occurrence: US)
  Receive Date: 20221209
  Receipt Date: 20230224
  Transmission Date: 20230418
  Serious: Yes (Life-Threatening, Hospitalization, Other)
  Sender: FDA-Public Use
  Company Number: US-ALLERGAN-2229523US

PATIENT
  Sex: Female

DRUGS (35)
  1. LINZESS [Suspect]
     Active Substance: LINACLOTIDE
     Indication: Constipation
     Dosage: 290 ?G, QD
     Route: 048
     Dates: start: 202206, end: 202211
  2. LINZESS [Suspect]
     Active Substance: LINACLOTIDE
     Dosage: 290 ?G, QD
     Route: 048
     Dates: start: 20220107, end: 20220909
  3. NAMENDA XR [Concomitant]
     Active Substance: MEMANTINE HYDROCHLORIDE
     Indication: Dementia
  4. NAMENDA XR [Concomitant]
     Active Substance: MEMANTINE HYDROCHLORIDE
     Indication: Amnesia
  5. NORCO [Concomitant]
     Active Substance: ACETAMINOPHEN\HYDROCODONE BITARTRATE
     Indication: Pain
  6. MORPHINE [Concomitant]
     Active Substance: MORPHINE
     Indication: Pain
  7. PILOCARPINE [Concomitant]
     Active Substance: PILOCARPINE
     Indication: Sjogren^s syndrome
  8. METHOTREXATE [Concomitant]
     Active Substance: METHOTREXATE
     Indication: Rheumatoid arthritis
  9. METHOTREXATE [Concomitant]
     Active Substance: METHOTREXATE
     Indication: Systemic lupus erythematosus
  10. LEVOTHYROXINE [Concomitant]
     Active Substance: LEVOTHYROXINE
     Indication: Hypothyroidism
  11. KLOR-CON [Concomitant]
     Active Substance: POTASSIUM CHLORIDE
     Indication: Mineral supplementation
  12. PREDNISONE ACETATE [Concomitant]
     Active Substance: PREDNISONE ACETATE
     Indication: Pain
  13. PREDNISONE ACETATE [Concomitant]
     Active Substance: PREDNISONE ACETATE
     Indication: Inflammation
  14. LYRICA [Concomitant]
     Active Substance: PREGABALIN
     Indication: Fibromyalgia
  15. LYRICA [Concomitant]
     Active Substance: PREGABALIN
     Indication: Rheumatoid arthritis
  16. RINVOQ [Concomitant]
     Active Substance: UPADACITINIB
     Indication: Rheumatoid arthritis
  17. REQUIP [Concomitant]
     Active Substance: ROPINIROLE HYDROCHLORIDE
     Indication: Restless legs syndrome
  18. VITAMIN B [Concomitant]
     Active Substance: VITAMIN B
     Indication: Neuropathy peripheral
  19. ZANAFLEX [Concomitant]
     Active Substance: TIZANIDINE HYDROCHLORIDE
     Indication: Muscle spasms
  20. TOPAMAX [Concomitant]
     Active Substance: TOPIRAMATE
     Indication: Migraine
  21. SAVELLA [Concomitant]
     Active Substance: MILNACIPRAN HYDROCHLORIDE
     Indication: Fibromyalgia
  22. HYDROXYZINE PAMOATE [Concomitant]
     Active Substance: HYDROXYZINE PAMOATE
     Indication: Anxiety
  23. HYDROXYCHLOROQUINE DIPHOSPHATE [Concomitant]
     Active Substance: HYDROXYCHLOROQUINE DIPHOSPHATE
     Indication: Rheumatoid arthritis
  24. HYDROXYCHLOROQUINE DIPHOSPHATE [Concomitant]
     Active Substance: HYDROXYCHLOROQUINE DIPHOSPHATE
     Indication: Systemic lupus erythematosus
  25. FOLIC ACID [Concomitant]
     Active Substance: FOLIC ACID
     Indication: Rheumatoid arthritis
  26. VITAMIN D [Concomitant]
     Active Substance: VITAMIN D NOS
  27. VITAMIN B12 [Concomitant]
     Active Substance: CYANOCOBALAMIN
  28. BUMEX [Concomitant]
     Active Substance: BUMETANIDE
     Indication: Fluid replacement
  29. BACLOFEN [Concomitant]
     Active Substance: BACLOFEN
     Indication: Muscle spasms
  30. ALLOPURINOL [Concomitant]
     Active Substance: ALLOPURINOL
     Indication: Sleep disorder
  31. OMEPRAZOLE [Concomitant]
     Active Substance: OMEPRAZOLE
     Indication: Gastrooesophageal reflux disease
  32. CIMZIA [Concomitant]
     Active Substance: CERTOLIZUMAB PEGOL
     Indication: Rheumatoid arthritis
  33. ADIPEX-P [Concomitant]
     Active Substance: PHENTERMINE HYDROCHLORIDE
     Indication: Weight decreased
  34. DIFLUCAN [Concomitant]
     Active Substance: FLUCONAZOLE
     Indication: Oral candidiasis
  35. DICLOFENAC [Concomitant]
     Active Substance: DICLOFENAC
     Indication: Rheumatoid arthritis

REACTIONS (16)
  - Chest pain [Unknown]
  - Oropharyngeal pain [Unknown]
  - Dry mouth [Unknown]
  - Dehydration [Unknown]
  - Infection [Recovered/Resolved]
  - Poor quality product administered [Unknown]
  - Bacterial infection [Unknown]
  - Inflammation [Unknown]
  - Respiratory disorder [Unknown]
  - Gastrointestinal disorder [Unknown]
  - Haemorrhage [Unknown]
  - Chemical burn [Unknown]
  - Gastritis erosive [Unknown]
  - Mucosal disorder [Unknown]
  - Product quality issue [Unknown]
  - Drug ineffective [Unknown]

NARRATIVE: CASE EVENT DATE: 20220101
